FAERS Safety Report 9830416 (Version 2)
Quarter: 2014Q1

REPORT INFORMATION
  Report Type: Spontaneous
  Country: US (occurrence: US)
  Receive Date: 20140120
  Receipt Date: 20140120
  Transmission Date: 20141002
  Serious: Yes (Hospitalization)
  Sender: FDA-Public Use
  Company Number: US-BAYER-US-2004-030513

PATIENT
  Age: 25 Year
  Sex: Female
  Weight: 81.82 kg

DRUGS (4)
  1. YASMIN [Suspect]
     Indication: ORAL CONTRACEPTION
     Dosage: 1 DF, QD
     Route: 048
     Dates: start: 20030623, end: 200408
  2. CELEXA [Concomitant]
     Indication: DEPRESSION
     Dosage: 20 MG, QD
     Route: 048
  3. ADVIL [Concomitant]
  4. NUVARING [Concomitant]

REACTIONS (1)
  - Pulmonary embolism [Unknown]
